FAERS Safety Report 24024431 (Version 2)
Quarter: 2024Q3

REPORT INFORMATION
  Report Type: Report from Study
  Country: CN (occurrence: CN)
  Receive Date: 20240628
  Receipt Date: 20240710
  Transmission Date: 20241016
  Serious: No
  Sender: ROCHE
  Company Number: CN-ROCHE-3485209

PATIENT
  Age: 72 Year
  Sex: Female
  Weight: 55.0 kg

DRUGS (12)
  1. ALECTINIB [Suspect]
     Active Substance: ALECTINIB
     Indication: Non-small cell lung cancer metastatic
     Route: 048
     Dates: start: 20211217
  2. CEFDINIR [Concomitant]
     Active Substance: CEFDINIR
     Route: 048
     Dates: start: 20211220
  3. URSODIOL [Concomitant]
     Active Substance: URSODIOL
     Route: 048
     Dates: start: 20220407
  4. URSODIOL [Concomitant]
     Active Substance: URSODIOL
     Route: 048
     Dates: start: 20230212
  5. DIETARY SUPPLEMENT\OPHIOCORDYCEPS SINENSIS [Concomitant]
     Active Substance: DIETARY SUPPLEMENT\OPHIOCORDYCEPS SINENSIS
     Route: 048
     Dates: start: 20230111
  6. SHENG XUE BAO KOU FU YE (TCM) [Concomitant]
     Indication: Platelet count increased
     Route: 048
     Dates: start: 20230111
  7. SHENG XUE BAO KOU FU YE (TCM) [Concomitant]
     Route: 048
     Dates: start: 20230315
  8. SHENG XUE BAO KOU FU YE (TCM) [Concomitant]
     Route: 048
     Dates: start: 20230630
  9. JIN SHUI BAO [Concomitant]
     Indication: Blood creatinine increased
     Route: 048
     Dates: start: 20231118
  10. COMPOUND YIGANLING CAPSULE [Concomitant]
     Indication: Blood bilirubin increased
     Dates: start: 20211220
  11. COMPOUND YIGANLING CAPSULE [Concomitant]
     Dates: start: 20221021, end: 20231024
  12. COMPOUND YIGANLING CAPSULE [Concomitant]
     Dates: start: 20221118

REACTIONS (1)
  - Blood alkaline phosphatase increased [Recovered/Resolved]

NARRATIVE: CASE EVENT DATE: 20231118
